FAERS Safety Report 9421717 (Version 1)
Quarter: 2013Q3

REPORT INFORMATION
  Report Type: Spontaneous
  Country: PT (occurrence: PT)
  Receive Date: 20130726
  Receipt Date: 20130726
  Transmission Date: 20140515
  Serious: Yes (Death, Hospitalization, Other)
  Sender: FDA-Public Use
  Company Number: PT-009507513-1307PRT013269

PATIENT
  Age: 56 Year
  Sex: Male

DRUGS (4)
  1. TEMODAL [Suspect]
     Indication: GLIOBLASTOMA
     Dosage: UNK
     Dates: start: 20130415
  2. ENOXAPARIN SODIUM [Concomitant]
  3. VALPROIC ACID [Concomitant]
  4. SULFAMETHOXAZOLE (+) TRIMETHOPRIM [Concomitant]

REACTIONS (4)
  - Sepsis [Fatal]
  - Bone marrow failure [Fatal]
  - Thrombocytopenia [Fatal]
  - Leukopenia [Fatal]
